FAERS Safety Report 6362627-X (Version None)
Quarter: 2009Q3

REPORT INFORMATION
  Report Type: 
  Country: None (occurrence: None)
  Receive Date: 20090919
  Receipt Date: 20090714
  Transmission Date: 20100115
  Serious: Yes (Hospitalization)
  Sender: FDA-Public Use
  Company Number: US-ABBOTT-09P-163-0578340-00

PATIENT
  Sex: Female
  Weight: 156.18 kg

DRUGS (12)
  1. HUMIRA [Suspect]
     Indication: FIBROMYALGIA
     Route: 058
     Dates: start: 20090209
  2. HUMIRA [Suspect]
     Dates: start: 20090714
  3. HUMIRA [Suspect]
  4. UNKNOWN ANTIMALARIAL MEDICATION [Concomitant]
     Indication: DRUG USE FOR UNKNOWN INDICATION
  5. AGGRENOX [Concomitant]
     Indication: DRUG USE FOR UNKNOWN INDICATION
     Dates: start: 20080101
  6. GLUCOVANCE [Concomitant]
     Indication: DRUG USE FOR UNKNOWN INDICATION
     Dates: start: 20080101
  7. HIGH BLOOD PRESSURE MED [Concomitant]
     Indication: DRUG USE FOR UNKNOWN INDICATION
     Dates: start: 20080101
  8. ANXIETY MEDICATION [Concomitant]
     Indication: DRUG USE FOR UNKNOWN INDICATION
     Dates: start: 20080101
  9. DEPRESSION MEDICATION [Concomitant]
     Indication: DRUG USE FOR UNKNOWN INDICATION
  10. VALIUM [Concomitant]
     Indication: DRUG USE FOR UNKNOWN INDICATION
     Dates: start: 20080101
  11. BYETTA [Concomitant]
     Indication: DRUG USE FOR UNKNOWN INDICATION
  12. ACTOS [Concomitant]
     Indication: DRUG USE FOR UNKNOWN INDICATION
     Dates: start: 20080101

REACTIONS (7)
  - ASTHENIA [None]
  - BONE PAIN [None]
  - COUGH [None]
  - JOINT CREPITATION [None]
  - MALAISE [None]
  - NIGHT SWEATS [None]
  - PYREXIA [None]
